FAERS Safety Report 14769376 (Version 9)
Quarter: 2021Q1

REPORT INFORMATION
  Report Type: Report from Study
  Country: None (occurrence: NL)
  Receive Date: 20180417
  Receipt Date: 20210216
  Transmission Date: 20210419
  Serious: Yes (Hospitalization)
  Sender: FDA-Public Use
  Company Number: NL-ABBVIE-18K-114-2311481-00

PATIENT
  Age: 81 Year
  Sex: Male
  Weight: 68 kg

DRUGS (10)
  1. DUODOPA [Suspect]
     Active Substance: CARBIDOPA\LEVODOPA
     Dosage: MD: 12.2ML, CD:2.6ML/H, ED: 3.0ML.
     Route: 050
  2. MADOPAR HBS [Concomitant]
     Active Substance: BENSERAZIDE HYDROCHLORIDE\LEVODOPA
     Indication: PARKINSON^S DISEASE
     Dosage: FREQUENCY TEXT? AT NIGHT
     Route: 048
     Dates: start: 20200121
  3. DUODOPA [Suspect]
     Active Substance: CARBIDOPA\LEVODOPA
     Dosage: MD: 12.0ML, CD:2.1ML/H, ED: 2.0ML.
     Route: 050
  4. DUODOPA [Suspect]
     Active Substance: CARBIDOPA\LEVODOPA
     Indication: PARKINSON^S DISEASE
     Dosage: MORNING DOSE: 11  CONTINUOUS DOSE: 2.3  EXTRA DOSE:  1
     Route: 050
     Dates: start: 20180319, end: 201803
  5. MADOPAR DISPERSIBL [Concomitant]
     Active Substance: BENSERAZIDE HYDROCHLORIDE\LEVODOPA
     Indication: PARKINSON^S DISEASE
     Dosage: MADOPAR DISPER
     Route: 065
  6. DUODOPA [Suspect]
     Active Substance: CARBIDOPA\LEVODOPA
     Dosage: MORNING DOSE: 11 CONTINUOUS DOSE: 1.9 EXTRA DOSE: 1
     Route: 050
     Dates: start: 2018, end: 2018
  7. DUODOPA [Suspect]
     Active Substance: CARBIDOPA\LEVODOPA
     Dosage: REDUCED PUMP DOSES
     Route: 050
     Dates: start: 201805
  8. DUODOPA [Suspect]
     Active Substance: CARBIDOPA\LEVODOPA
     Dosage: RAISED MD WITH 1.0 ML;ED:2.0 ML
     Route: 050
  9. DISPER [Concomitant]
     Indication: PRODUCT USED FOR UNKNOWN INDICATION
     Route: 065
  10. DUODOPA [Suspect]
     Active Substance: CARBIDOPA\LEVODOPA
     Dosage: MD: 11.0ML, CD:2.1ML/H, ED: 1.0ML.
     Route: 050
     Dates: start: 20180321, end: 2018

REACTIONS (34)
  - Urinary tract infection [Recovered/Resolved]
  - Asthenia [Not Recovered/Not Resolved]
  - Restlessness [Not Recovered/Not Resolved]
  - Stoma site discharge [Recovered/Resolved]
  - Musculoskeletal stiffness [Not Recovered/Not Resolved]
  - Freezing phenomenon [Not Recovered/Not Resolved]
  - Balance disorder [Not Recovered/Not Resolved]
  - Gait inability [Not Recovered/Not Resolved]
  - Sleep disorder [Recovered/Resolved]
  - Inflammatory marker increased [Not Recovered/Not Resolved]
  - Dysstasia [Not Recovered/Not Resolved]
  - Loss of personal independence in daily activities [Unknown]
  - Urinary tract infection [Recovered/Resolved]
  - Orthostatic hypotension [Not Recovered/Not Resolved]
  - Disturbance in attention [Not Recovered/Not Resolved]
  - Diarrhoea [Recovered/Resolved]
  - Dyskinesia [Not Recovered/Not Resolved]
  - Device leakage [Unknown]
  - Sensitivity to weather change [Unknown]
  - Fall [Not Recovered/Not Resolved]
  - Stoma site erythema [Recovered/Resolved]
  - Bowel movement irregularity [Unknown]
  - Abnormal dreams [Not Recovered/Not Resolved]
  - Nightmare [Unknown]
  - Tremor [Not Recovered/Not Resolved]
  - On and off phenomenon [Not Recovered/Not Resolved]
  - Stoma site rash [Recovered/Resolved]
  - Stoma site reaction [Unknown]
  - Amnesia [Not Recovered/Not Resolved]
  - Therapeutic product effect incomplete [Recovering/Resolving]
  - Dizziness [Not Recovered/Not Resolved]
  - Abnormal faeces [Not Recovered/Not Resolved]
  - General physical health deterioration [Unknown]
  - Unevaluable event [Unknown]

NARRATIVE: CASE EVENT DATE: 20171231
